FAERS Safety Report 12427038 (Version 1)
Quarter: 2016Q2

REPORT INFORMATION
  Report Type: Spontaneous
  Country: IN (occurrence: IN)
  Receive Date: 20160601
  Receipt Date: 20160601
  Transmission Date: 20160815
  Serious: Yes (Other)
  Sender: FDA-Public Use
  Company Number: IN-VALIDUS PHARMACEUTICALS LLC-IN-2016VAL001660

PATIENT
  Age: 65 Year
  Sex: Female

DRUGS (4)
  1. METOPROLOL TARTRATE. [Suspect]
     Active Substance: METOPROLOL TARTRATE
     Indication: TACHYARRHYTHMIA
  2. METOPROLOL TARTRATE. [Suspect]
     Active Substance: METOPROLOL TARTRATE
     Indication: ATRIAL FLUTTER
     Dosage: 50 MG, QD
  3. AMIODARONE                         /00133102/ [Suspect]
     Active Substance: AMIODARONE
     Indication: ATRIAL FLUTTER
     Dosage: 200 MG, BID
  4. AMIODARONE                         /00133102/ [Suspect]
     Active Substance: AMIODARONE
     Indication: TACHYARRHYTHMIA

REACTIONS (1)
  - Sinus node dysfunction [Recovered/Resolved]
